FAERS Safety Report 24943143 (Version 1)
Quarter: 2025Q1

REPORT INFORMATION
  Report Type: Spontaneous
  Country: GB (occurrence: GB)
  Receive Date: 20250207
  Receipt Date: 20250207
  Transmission Date: 20250409
  Serious: Yes (Other)
  Sender: SANOFI AVENTIS
  Company Number: GB-MHRA-TPP18182077C8623610YC1737469854364

PATIENT
  Age: 73 Year
  Sex: Male
  Weight: 115 kg

DRUGS (16)
  1. TAMSULOSIN HYDROCHLORIDE [Suspect]
     Active Substance: TAMSULOSIN HYDROCHLORIDE
     Indication: Ill-defined disorder
     Dosage: 0.4 MG, QD
     Route: 065
     Dates: start: 20241023
  2. ATRAUMAN-C [Concomitant]
     Indication: Ill-defined disorder
     Route: 065
     Dates: start: 20241022, end: 20241105
  3. CLOBETASOL PROPIONATE [Concomitant]
     Active Substance: CLOBETASOL PROPIONATE
     Indication: Ill-defined disorder
     Dosage: UNK, QD (APPLY ONCE OR TWICE A DAY)
     Route: 065
     Dates: start: 20241025, end: 20241122
  4. DOXYCYCLINE [Concomitant]
     Active Substance: DOXYCYCLINE
     Indication: Ill-defined disorder
     Route: 065
     Dates: start: 20241025, end: 20241101
  5. Octenisan [Concomitant]
     Indication: Ill-defined disorder
     Route: 065
     Dates: start: 20241029, end: 20241103
  6. CLOBETASOL [Concomitant]
     Active Substance: CLOBETASOL
     Indication: Ill-defined disorder
     Route: 065
     Dates: start: 20241111, end: 20241209
  7. INADINE [Concomitant]
     Indication: Ill-defined disorder
     Route: 065
     Dates: start: 20241125, end: 20241209
  8. Octenilin [Concomitant]
     Indication: Ill-defined disorder
     Route: 065
     Dates: start: 20241125, end: 20241209
  9. CLARITHROMYCIN [Concomitant]
     Active Substance: CLARITHROMYCIN
     Indication: Ill-defined disorder
     Dosage: 1 DF, Q12H (TAKE ONE EVERY 12 HRS)
     Route: 065
     Dates: start: 20250121
  10. APIXABAN [Concomitant]
     Active Substance: APIXABAN
     Indication: Ill-defined disorder
     Dosage: 1 DF, BID (TAKE ONE TABLET TWICE DAILY. (DIRECT ORAL ANTIC...)
     Route: 065
     Dates: start: 20211111
  11. BISOPROLOL [Concomitant]
     Active Substance: BISOPROLOL
     Indication: Ill-defined disorder
     Dosage: 1 DF, QD (TAKE ONE TABLET ONCE A DAY)
     Route: 065
     Dates: start: 20211111
  12. OMEPRAZOLE [Concomitant]
     Active Substance: OMEPRAZOLE
     Indication: Ill-defined disorder
     Dosage: 1 DF, QD (TAKE ONE CAPSULE DAILY AS DIRECTED FOR INDIGEST...)
     Route: 065
     Dates: start: 20211111
  13. RAMIPRIL [Concomitant]
     Active Substance: RAMIPRIL
     Indication: Ill-defined disorder
     Dosage: 1 DF, QD (TAKE ONE AT NIGHT)
     Route: 065
     Dates: start: 20231010, end: 20241111
  14. CALCIUM CARBONATE [Concomitant]
     Active Substance: CALCIUM CARBONATE
     Indication: Ill-defined disorder
     Dosage: 1 DF, BID (TAKE ONE TABLET TWICE A DAY LUNCHTIME AND TEATIME)
     Route: 065
     Dates: start: 20240308
  15. DOCUSATE SODIUM [Concomitant]
     Active Substance: DOCUSATE SODIUM
     Indication: Ill-defined disorder
     Dosage: UNK, BID (TAKE ONE OR TWO CAPSULES TWICE A DAY WHEN NEEDE...)
     Route: 065
     Dates: start: 20240308
  16. FUROSEMIDE [Concomitant]
     Active Substance: FUROSEMIDE
     Indication: Ill-defined disorder
     Dosage: 1 DF, QD (TAKE ONE TABLET ONCE A DAY EACH MORNING)
     Route: 065
     Dates: start: 20240412

REACTIONS (1)
  - Skin reaction [Recovering/Resolving]
